FAERS Safety Report 5395658-7 (Version None)
Quarter: 2007Q3

REPORT INFORMATION
  Report Type: 
  Country: None (occurrence: None)
  Receive Date: 20070724
  Receipt Date: 20070717
  Transmission Date: 20080115
  Serious: Yes (Hospitalization)
  Sender: FDA-Public Use
  Company Number: GB-ROXANE LABORATORIES, INC-2007-BP-17633RO

PATIENT
  Age: 7 Year
  Sex: Male
  Weight: 22.16 kg

DRUGS (5)
  1. FLUTICASONE PROPIONATE [Suspect]
     Indication: ASTHMA
     Dosage: 500 MCG BID
     Route: 055
  2. SERETIDE 250 [Suspect]
     Indication: ASTHMA
     Route: 055
  3. SLO-PHYLLIN [Concomitant]
     Indication: ASTHMA
     Route: 048
  4. SALMETEROL [Concomitant]
     Indication: ASTHMA
     Route: 055
  5. MONTELUKAST SODIUM [Concomitant]
     Indication: ASTHMA

REACTIONS (7)
  - ABDOMINAL PAIN [None]
  - ADRENAL SUPPRESSION [None]
  - ENCEPHALOPATHY [None]
  - HYPERTRICHOSIS [None]
  - HYPONATRAEMIA [None]
  - SOMNOLENCE [None]
  - VOMITING [None]
